FAERS Safety Report 9449124 (Version 1)
Quarter: 2013Q3

REPORT INFORMATION
  Report Type: Spontaneous
  Country: US (occurrence: US)
  Receive Date: 20130808
  Receipt Date: 20130808
  Transmission Date: 20140515
  Serious: Yes (Other)
  Sender: FDA-Public Use
  Company Number: US-BAXTER-2013BAX029097

PATIENT
  Age: 62 Year
  Sex: Female

DRUGS (3)
  1. CYCLOPHOSPHAMIDE FOR INJECTION, USP [Suspect]
     Indication: BREAST CANCER
     Route: 065
  2. METHOTREXATE [Suspect]
     Indication: BREAST CANCER
     Route: 065
  3. 5-FLUOROURACIL [Suspect]
     Indication: BREAST CANCER
     Route: 065

REACTIONS (2)
  - Second primary malignancy [Unknown]
  - Extraskeletal osteosarcoma [Unknown]
